FAERS Safety Report 8591056-3 (Version None)
Quarter: 2012Q3

REPORT INFORMATION
  Report Type: 
  Country: None (occurrence: None)
  Receive Date: 20120813
  Receipt Date: 20120803
  Transmission Date: 20120928
  Serious: Yes (Hospitalization)
  Sender: FDA-Public Use
  Company Number: CA-JNJFOC-20120803108

PATIENT
  Sex: Female
  Weight: 52.62 kg

DRUGS (1)
  1. STELARA [Suspect]
     Indication: HIDRADENITIS
     Route: 058

REACTIONS (2)
  - COLECTOMY [None]
  - HOSPITALISATION [None]
